FAERS Safety Report 10020826 (Version 2)
Quarter: 2015Q1

REPORT INFORMATION
  Report Type: Spontaneous
  Country: SE (occurrence: SE)
  Receive Date: 20140319
  Receipt Date: 20150325
  Transmission Date: 20150720
  Serious: Yes (Life-Threatening, Hospitalization)
  Sender: FDA-Public Use
  Company Number: SE-ASTRAZENECA-2014SE18522

PATIENT
  Age: 82 Year
  Sex: Male

DRUGS (9)
  1. NEXIUM HP [Suspect]
     Active Substance: AMOXICILLIN\CLARITHROMYCIN\ESOMEPRAZOLE
     Route: 048
     Dates: start: 20140221, end: 20140302
  2. BEHEPAN [Concomitant]
     Active Substance: HYDROXOCOBALAMIN
  3. MAGNESIUM [Concomitant]
     Active Substance: MAGNESIUM
  4. OXYNORM [Concomitant]
     Active Substance: OXYCODONE HYDROCHLORIDE
     Dosage: 1 MG/ML
     Route: 048
  5. CLARITHROMYCIN. [Suspect]
     Active Substance: CLARITHROMYCIN
     Route: 065
     Dates: start: 20140221, end: 20140302
  6. TROMBYL [Suspect]
     Active Substance: ASPIRIN
     Route: 065
     Dates: end: 20140219
  7. AMOXICILLIN. [Suspect]
     Active Substance: AMOXICILLIN
     Route: 065
     Dates: start: 20140221, end: 20140302
  8. LOSARTAN [Concomitant]
     Active Substance: LOSARTAN
  9. DUROFERON [Concomitant]
     Active Substance: FERROUS SULFATE\FERROUS SULFATE, DRIED
     Dosage: 100 MG FE2

REACTIONS (2)
  - Clostridium difficile infection [Not Recovered/Not Resolved]
  - Gastric haemorrhage [Not Recovered/Not Resolved]

NARRATIVE: CASE EVENT DATE: 20140219
